FAERS Safety Report 17598074 (Version 1)
Quarter: 2020Q1

REPORT INFORMATION
  Report Type: Spontaneous
  Country: US (occurrence: US)
  Receive Date: 20200328
  Receipt Date: 20200328
  Transmission Date: 20200409
  Serious: Yes (Other)
  Sender: FDA-Public Use
  Company Number: None

PATIENT
  Age: 7 Year
  Sex: Male

DRUGS (3)
  1. TACROLIMUS OINTMENT 0.03% [Suspect]
     Active Substance: TACROLIMUS
     Indication: VITILIGO
     Route: 061
     Dates: start: 20190109, end: 20200327
  2. HYDROCORTISONE 1% EX CREAM [Concomitant]
     Active Substance: HYDROCORTISONE
  3. MULTIVITAMINS [Concomitant]
     Active Substance: VITAMINS

REACTIONS (2)
  - Nasopharyngitis [None]
  - Cough [None]

NARRATIVE: CASE EVENT DATE: 20200207
